FAERS Safety Report 10083733 (Version 1)
Quarter: 2014Q2

REPORT INFORMATION
  Report Type: Spontaneous
  Country: US (occurrence: US)
  Receive Date: 20140417
  Receipt Date: 20140417
  Transmission Date: 20141212
  Serious: No
  Sender: FDA-Public Use
  Company Number: US-PFIZER INC-2014105541

PATIENT
  Age: 62 Year
  Sex: Female
  Weight: 68.03 kg

DRUGS (9)
  1. XELJANZ [Suspect]
     Dosage: 5 MG, 2X/DAY
     Route: 048
  2. ORENCIA [Concomitant]
     Dosage: 125 MG/ML
  3. DEMEROL [Concomitant]
     Dosage: 50 MG
  4. SOMA [Concomitant]
     Dosage: 250 MG
  5. LEUCOVORIN CALCIUM [Concomitant]
     Dosage: 5 MG
  6. METHOTREXATE [Concomitant]
     Dosage: 2.5 MG
  7. ACTONEL [Concomitant]
     Dosage: 150 MG
  8. PRILOSEC [Concomitant]
     Dosage: 10 MG
  9. LORTAB [Concomitant]
     Dosage: HYDROCODONE BITARTRATE 10 MG, PARACETAMOL 500 MG

REACTIONS (4)
  - Headache [Unknown]
  - Nausea [Unknown]
  - Vomiting [Unknown]
  - Diarrhoea [Unknown]
